FAERS Safety Report 5525452-5 (Version None)
Quarter: 2007Q4

REPORT INFORMATION
  Report Type: 
  Country: None (occurrence: None)
  Receive Date: 20071119
  Receipt Date: 20071106
  Transmission Date: 20080405
  Serious: Yes (Other)
  Sender: FDA-Public Use
  Company Number: GXKR2007TR09554

PATIENT
  Age: 48 Year
  Sex: Male

DRUGS (1)
  1. CHLORPROMAZINE [Suspect]
     Indication: SCHIZOPHRENIA
     Dosage: 50-200MG (AVERAGE DOSE 100MG)

REACTIONS (6)
  - CATARACT NUCLEAR [None]
  - FLOPPY IRIS SYNDROME [None]
  - MIOSIS [None]
  - NO THERAPEUTIC RESPONSE [None]
  - POSTERIOR CAPSULE RUPTURE [None]
  - PUPILLARY DISORDER [None]
